FAERS Safety Report 16028959 (Version 1)
Quarter: 2019Q1

REPORT INFORMATION
  Report Type: Spontaneous
  Country: US (occurrence: US)
  Receive Date: 20190204
  Receipt Date: 20190204
  Transmission Date: 20190418
  Serious: Yes (Hospitalization, Other)
  Sender: FDA-Public Use
  Company Number: None

PATIENT
  Age: 66 Year
  Sex: Female
  Weight: 84.9 kg

DRUGS (4)
  1. ADRIAMYCIN [Suspect]
     Active Substance: DOXORUBICIN HYDROCHLORIDE
     Indication: TRIPLE NEGATIVE BREAST CANCER
     Route: 042
     Dates: start: 20181203
  2. CYTOXAN [Suspect]
     Active Substance: CYCLOPHOSPHAMIDE
     Route: 042
     Dates: start: 20181203
  3. PRBC [Concomitant]
  4. MEDI4736 [Concomitant]
     Active Substance: DURVALUMAB

REACTIONS (1)
  - Anaemia [None]

NARRATIVE: CASE EVENT DATE: 20181213
